FAERS Safety Report 9100941 (Version 1)
Quarter: 2013Q1

REPORT INFORMATION
  Report Type: Spontaneous
  Country: IT (occurrence: IT)
  Receive Date: 20130214
  Receipt Date: 20130214
  Transmission Date: 20140127
  Serious: Yes (Hospitalization)
  Sender: FDA-Public Use
  Company Number: IT-PFIZER INC-2013056024

PATIENT
  Age: 40 Year
  Sex: Female

DRUGS (4)
  1. PHENYTOIN SODIUM [Suspect]
     Indication: EPILEPSY
     Dosage: 1 UNIT DOSE DAILY
     Route: 048
     Dates: start: 20120101, end: 20121219
  2. PRIMIDONE [Concomitant]
     Indication: EPILEPSY
  3. PHENOBARBITAL [Concomitant]
  4. RISPERIDONE [Concomitant]

REACTIONS (3)
  - Toxicity to various agents [Recovered/Resolved]
  - Ataxia [Recovered/Resolved]
  - Asthenia [Recovered/Resolved]
